FAERS Safety Report 6325363-1 (Version None)
Quarter: 2009Q3

REPORT INFORMATION
  Report Type: 
  Country: None (occurrence: None)
  Receive Date: 20090824
  Receipt Date: 20090713
  Transmission Date: 20100115
  Serious: No
  Sender: FDA-Public Use
  Company Number: US-ABBOTT-09P-163-0585254-00

PATIENT
  Sex: Male
  Weight: 78.088 kg

DRUGS (9)
  1. NIASPAN [Suspect]
     Indication: HIGH DENSITY LIPOPROTEIN DECREASED
     Route: 048
     Dates: start: 20090629, end: 20090712
  2. NORVASC [Concomitant]
     Indication: BLOOD PRESSURE
  3. ATENOLOL [Concomitant]
     Indication: BLOOD PRESSURE
  4. ZETIA [Concomitant]
     Indication: DRUG USE FOR UNKNOWN INDICATION
  5. ASPIRIN [Concomitant]
     Indication: DRUG USE FOR UNKNOWN INDICATION
  6. LIPITOR [Concomitant]
     Indication: DRUG USE FOR UNKNOWN INDICATION
  7. PLAVIX [Concomitant]
     Indication: DRUG USE FOR UNKNOWN INDICATION
  8. MEN MVI [Concomitant]
     Indication: DRUG USE FOR UNKNOWN INDICATION
  9. FISH OIL [Concomitant]
     Indication: DRUG USE FOR UNKNOWN INDICATION

REACTIONS (6)
  - ABDOMINAL PAIN [None]
  - DIARRHOEA [None]
  - FEELING HOT [None]
  - HYPERHIDROSIS [None]
  - PRURITUS [None]
  - RASH MACULAR [None]
